FAERS Safety Report 6399166-6 (Version None)
Quarter: 2009Q4

REPORT INFORMATION
  Report Type: 
  Country: None (occurrence: None)
  Receive Date: 20091008
  Receipt Date: 20090924
  Transmission Date: 20100525
  Serious: Yes (Hospitalization)
  Sender: FDA-Public Use
  Company Number: POMP-1000679

PATIENT
  Age: 58 Year
  Sex: Female
  Weight: 87 kg

DRUGS (6)
  1. MYOZYME [Suspect]
     Indication: GLYCOGEN STORAGE DISEASE TYPE II
     Dosage: INTRAVENOUS
     Route: 042
     Dates: start: 20070327, end: 20090730
  2. HYDROCORTISONE (SALICYLIC ACID) [Concomitant]
  3. FEMHRT [Concomitant]
  4. FELCAINIDE (FLECAINIDE) [Concomitant]
  5. OMEPRAZOL (OMEPRAZOLE MAGNESIUM) [Concomitant]
  6. FERROUS GLUCONATE (FERROUS GLUCONATE) [Concomitant]

REACTIONS (3)
  - INFUSION RELATED REACTION [None]
  - MECHANICAL VENTILATION COMPLICATION [None]
  - RESPIRATORY DEPRESSION [None]
